FAERS Safety Report 11021240 (Version 3)
Quarter: 2016Q1

REPORT INFORMATION
  Report Type: Spontaneous
  Country: US (occurrence: US)
  Receive Date: 20150413
  Receipt Date: 20160328
  Transmission Date: 20160525
  Serious: Yes (Other)
  Sender: FDA-Public Use
  Company Number: US-009507513-1504USA005235

PATIENT
  Sex: Male

DRUGS (1)
  1. PROPECIA [Suspect]
     Active Substance: FINASTERIDE
     Indication: ALOPECIA
     Dosage: 1 MG, QD
     Route: 048
     Dates: start: 2000, end: 201109

REACTIONS (26)
  - Sperm concentration decreased [Unknown]
  - Hypogonadism [Unknown]
  - Cough [Unknown]
  - Ventricular extrasystoles [Unknown]
  - Musculoskeletal chest pain [Unknown]
  - Depression [Not Recovered/Not Resolved]
  - Plantar fasciitis [Unknown]
  - Tendonitis [Unknown]
  - Loss of libido [Unknown]
  - Joint dislocation [Recovering/Resolving]
  - Anxiety [Unknown]
  - Neck pain [Unknown]
  - Fall [Unknown]
  - Erectile dysfunction [Not Recovered/Not Resolved]
  - Colon adenoma [Unknown]
  - Rib fracture [Recovered/Resolved]
  - Skin abrasion [Recovering/Resolving]
  - Ligament rupture [Recovering/Resolving]
  - Fatigue [Unknown]
  - Back pain [Unknown]
  - Fall [Recovered/Resolved]
  - Ventricular fibrillation [Unknown]
  - Sexual dysfunction [Not Recovered/Not Resolved]
  - Osteoarthritis [Unknown]
  - Lipids increased [Unknown]
  - Attention deficit/hyperactivity disorder [Unknown]

NARRATIVE: CASE EVENT DATE: 2000
